FAERS Safety Report 9945384 (Version 1)
Quarter: 2014Q1

REPORT INFORMATION
  Report Type: Report from Study
  Country: US (occurrence: US)
  Receive Date: 20140303
  Receipt Date: 20140303
  Transmission Date: 20141002
  Serious: No
  Sender: FDA-Public Use
  Company Number: US-ABBVIE-13P-163-1049143-00

PATIENT
  Age: 51 Year
  Sex: Male

DRUGS (4)
  1. HUMIRA [Suspect]
     Indication: CROHN^S DISEASE
  2. 6-MP [Concomitant]
     Indication: CROHN^S DISEASE
     Dosage: 100MG DAILY
  3. ASACOL [Concomitant]
     Indication: CROHN^S DISEASE
     Dosage: DAILY
  4. ENTOCORT [Concomitant]
     Indication: CROHN^S DISEASE
     Dosage: EVERY AM

REACTIONS (3)
  - Device malfunction [Unknown]
  - Drug ineffective [Unknown]
  - Wrong technique in drug usage process [Unknown]
